FAERS Safety Report 13357837 (Version 2)
Quarter: 2017Q3

REPORT INFORMATION
  Report Type: Spontaneous
  Country: US (occurrence: US)
  Receive Date: 20170322
  Receipt Date: 20170717
  Transmission Date: 20171127
  Serious: No
  Sender: FDA-Public Use
  Company Number: US-PFIZER INC-2017070448

PATIENT
  Age: 55 Year
  Sex: Female
  Weight: 61.23 kg

DRUGS (1)
  1. XELJANZ XR [Suspect]
     Active Substance: TOFACITINIB CITRATE
     Dosage: UNK

REACTIONS (6)
  - Hypersensitivity [Not Recovered/Not Resolved]
  - Hypertension [Unknown]
  - Dermatitis [Unknown]
  - Rash [Not Recovered/Not Resolved]
  - High density lipoprotein increased [Unknown]
  - Blister [Not Recovered/Not Resolved]

NARRATIVE: CASE EVENT DATE: 201702
